FAERS Safety Report 21048997 (Version 1)
Quarter: 2022Q3

REPORT INFORMATION
  Report Type: Spontaneous
  Country: US (occurrence: None)
  Receive Date: 20220706
  Receipt Date: 20220706
  Transmission Date: 20221026
  Serious: Yes (Hospitalization)
  Sender: FDA-Public Use
  Company Number: None

PATIENT
  Age: 84 Year
  Sex: Male
  Weight: 73.21 kg

DRUGS (21)
  1. IMATINIB [Suspect]
     Active Substance: IMATINIB
     Indication: Chronic myeloid leukaemia
     Dosage: FREQUENCY : DAILY;?
     Route: 048
  2. ATIVAN [Concomitant]
     Active Substance: LORAZEPAM
  3. ATORVASTATIN [Concomitant]
     Active Substance: ATORVASTATIN
  4. CALCIUM CARBONATE [Concomitant]
     Active Substance: CALCIUM CARBONATE
  5. CICLOPIROX [Concomitant]
     Active Substance: CICLOPIROX
  6. COLCHICINE [Concomitant]
     Active Substance: COLCHICINE
  7. FUROSEMIDE [Concomitant]
     Active Substance: FUROSEMIDE
  8. GLUCERNA [Concomitant]
     Active Substance: AMINO ACIDS\DEXTROSE\ELECTROLYTES NOS\SOYBEAN OIL\VITAMINS
  9. ALBUTEROL\IPRATROPIUM [Concomitant]
     Active Substance: ALBUTEROL\IPRATROPIUM
  10. METOPROLOL [Concomitant]
     Active Substance: METOPROLOL
  11. MIRALAX [Concomitant]
     Active Substance: POLYETHYLENE GLYCOL 3350
  12. OXYCODONE [Concomitant]
     Active Substance: OXYCODONE
  13. POTASSIUM [Suspect]
     Active Substance: POTASSIUM
  14. SERTRALINE [Concomitant]
     Active Substance: SERTRALINE HYDROCHLORIDE
  15. SPIRIVA [Concomitant]
     Active Substance: TIOTROPIUM BROMIDE MONOHYDRATE
  16. TAMSULOSIN [Concomitant]
     Active Substance: TAMSULOSIN
  17. TRINTELLIX [Concomitant]
     Active Substance: VORTIOXETINE HYDROBROMIDE
  18. VOLTAREN [Concomitant]
     Active Substance: DICLOFENAC SODIUM
  19. VRAYLAR [Concomitant]
     Active Substance: CARIPRAZINE
  20. WARFARIN [Concomitant]
     Active Substance: WARFARIN
  21. ZOLPIDEM [Concomitant]
     Active Substance: ZOLPIDEM TARTRATE

REACTIONS (1)
  - Cerebral haemorrhage [None]
